FAERS Safety Report 16645330 (Version 5)
Quarter: 2021Q2

REPORT INFORMATION
  Report Type: Spontaneous
  Country: US (occurrence: US)
  Receive Date: 20190729
  Receipt Date: 20210624
  Transmission Date: 20210716
  Serious: Yes (Other)
  Sender: FDA-Public Use
  Company Number: US-GILEAD-2019-0420201

PATIENT
  Age: 45 Year
  Sex: Male
  Weight: 58.05 kg

DRUGS (19)
  1. ACETAMINOPHEN. [Concomitant]
     Active Substance: ACETAMINOPHEN
  2. HEPARIN [Concomitant]
     Active Substance: HEPARIN SODIUM
  3. PANTOPRAZOLE [Concomitant]
     Active Substance: PANTOPRAZOLE
  4. LORATADINE. [Concomitant]
     Active Substance: LORATADINE
  5. JULUCA [Concomitant]
     Active Substance: DOLUTEGRAVIR SODIUM\RILPIVIRINE HYDROCHLORIDE
  6. NORVASC [Concomitant]
     Active Substance: AMLODIPINE BESYLATE
  7. AMOXICILLIN. [Concomitant]
     Active Substance: AMOXICILLIN
  8. ASPIRIN (E.C.) [Concomitant]
     Active Substance: ASPIRIN
  9. ATORVASTATIN [Concomitant]
     Active Substance: ATORVASTATIN
  10. ATRIPLA [Suspect]
     Active Substance: EFAVIRENZ\EMTRICITABINE\TENOFOVIR DISOPROXIL FUMARATE
     Indication: HIV INFECTION
     Dosage: UNK
     Route: 048
     Dates: start: 2010, end: 2018
  11. FAMOTIDINE. [Concomitant]
     Active Substance: FAMOTIDINE
  12. LASIX [Concomitant]
     Active Substance: FUROSEMIDE
  13. JANUVIA [Concomitant]
     Active Substance: SITAGLIPTIN PHOSPHATE
  14. CARVEDILOL. [Concomitant]
     Active Substance: CARVEDILOL
  15. INSULIN [Concomitant]
     Active Substance: INSULIN NOS
  16. LEVOTHYROXINE. [Concomitant]
     Active Substance: LEVOTHYROXINE
  17. PROTONIX [OMEPRAZOLE] [Concomitant]
     Active Substance: OMEPRAZOLE
  18. VENTOLIN HFA [Concomitant]
     Active Substance: ALBUTEROL SULFATE
  19. HCTZ [Concomitant]
     Active Substance: HYDROCHLOROTHIAZIDE

REACTIONS (11)
  - End stage renal disease [Not Recovered/Not Resolved]
  - Emotional distress [Not Recovered/Not Resolved]
  - Chronic kidney disease [Not Recovered/Not Resolved]
  - Anhedonia [Unknown]
  - Nephrogenic anaemia [Unknown]
  - Anxiety [Not Recovered/Not Resolved]
  - Acute kidney injury [Unknown]
  - Economic problem [Not Recovered/Not Resolved]
  - Renal failure [Not Recovered/Not Resolved]
  - Depression [Not Recovered/Not Resolved]
  - Pain [Not Recovered/Not Resolved]

NARRATIVE: CASE EVENT DATE: 20171029
